FAERS Safety Report 25864069 (Version 1)
Quarter: 2025Q3

REPORT INFORMATION
  Report Type: Spontaneous
  Country: US (occurrence: None)
  Receive Date: 20250929
  Receipt Date: 20250929
  Transmission Date: 20251021
  Serious: Yes (Hospitalization)
  Sender: FDA-CTU
  Company Number: None

PATIENT
  Sex: Female

DRUGS (3)
  1. VYNDAQEL [Suspect]
     Active Substance: TAFAMIDIS MEGLUMINE
     Indication: Chronic left ventricular failure
     Dosage: ? TAKE 4 CAPSULES BY MOUTH ONCE PER DAY
     Route: 048
     Dates: start: 20250301
  2. ALENDRONATE [Concomitant]
     Active Substance: ALENDRONATE SODIUM
  3. WARFARIN [Concomitant]
     Active Substance: WARFARIN

REACTIONS (2)
  - Haemorrhage [None]
  - Ulcer [None]
